FAERS Safety Report 7601429-0 (Version None)
Quarter: 2011Q2

REPORT INFORMATION
  Report Type: 
  Country: None (occurrence: None)
  Receive Date: 20110629
  Receipt Date: 20110615
  Transmission Date: 20111010
  Serious: Yes (Other)
  Sender: FDA-Public Use
  Company Number: 2011MA007212

PATIENT
  Age: 31 Year
  Sex: Female

DRUGS (2)
  1. PHENOBARBITAL TAB [Concomitant]
  2. CARBAMAZEPINE [Suspect]
     Indication: CONVULSION

REACTIONS (3)
  - CHOLELITHIASIS [None]
  - VANISHING BILE DUCT SYNDROME [None]
  - HEPATIC FIBROSIS [None]
